FAERS Safety Report 5648887-9 (Version None)
Quarter: 2008Q1

REPORT INFORMATION
  Report Type: 
  Country: None (occurrence: None)
  Receive Date: 20080229
  Receipt Date: 20080220
  Transmission Date: 20080703
  Serious: Yes (Other)
  Sender: FDA-Public Use
  Company Number: 18413

PATIENT
  Age: 65 Year
  Sex: Male

DRUGS (5)
  1. CYTARABINE [Suspect]
     Indication: ACUTE MYELOID LEUKAEMIA
     Dosage: 100 MG/M2 DAILY
  2. DAUNORUBICIN HCL [Suspect]
     Indication: ACUTE MYELOID LEUKAEMIA
     Dosage: 50 MG/M2 DAILY
  3. ANTIBIOTICS [Concomitant]
  4. ANTIMYCOTICS [Concomitant]
  5. LINEZOLID [Concomitant]

REACTIONS (9)
  - ACUTE RESPIRATORY DISTRESS SYNDROME [None]
  - DISSEMINATED INTRAVASCULAR COAGULATION [None]
  - ENTEROCOCCAL INFECTION [None]
  - GASTROINTESTINAL MUCOSAL NECROSIS [None]
  - HAEMODYNAMIC INSTABILITY [None]
  - MEGACOLON [None]
  - MULTI-ORGAN FAILURE [None]
  - NEUTROPENIC COLITIS [None]
  - RENAL FAILURE [None]
